FAERS Safety Report 8439744-3 (Version None)
Quarter: 2012Q2

REPORT INFORMATION
  Report Type: 
  Country: None (occurrence: None)
  Receive Date: 20120323
  Receipt Date: 20110603
  Transmission Date: 20120825
  Serious: Yes (Hospitalization)
  Sender: FDA-Public Use
  Company Number: 163-21880-11053903

PATIENT
  Age: 52 Year
  Sex: Male

DRUGS (9)
  1. AMBIEN [Concomitant]
  2. METOPROLOL TARTRATE [Concomitant]
  3. SPIRONOLACTONE [Concomitant]
  4. LISINOPRIL [Concomitant]
  5. ASPIRIN [Concomitant]
  6. AMITRIPTYLINE HCL [Concomitant]
  7. LENALIDOMIDE [Suspect]
     Indication: MULTIPLE MYELOMA
     Dosage: 25 MG, DAILY, PO
     Route: 048
     Dates: start: 20100625
  8. XANAX [Concomitant]
  9. TIZANIDINE HCL [Concomitant]

REACTIONS (3)
  - PLATELET COUNT DECREASED [None]
  - WHITE BLOOD CELL COUNT DECREASED [None]
  - BRONCHITIS [None]
